FAERS Safety Report 5714294-3 (Version None)
Quarter: 2008Q2

REPORT INFORMATION
  Report Type: 
  Country: None (occurrence: None)
  Receive Date: 20080422
  Receipt Date: 20080422
  Transmission Date: 20081010
  Serious: No
  Sender: FDA-Public Use
  Company Number: None

PATIENT
  Age: 17 Year
  Sex: Female
  Weight: 63.5036 kg

DRUGS (1)
  1. SINGULAIR [Suspect]
     Dosage: DAILY PO
     Route: 048

REACTIONS (3)
  - ANXIETY [None]
  - FEAR [None]
  - IMPAIRED WORK ABILITY [None]
